FAERS Safety Report 25628822 (Version 1)
Quarter: 2025Q3

REPORT INFORMATION
  Report Type: Spontaneous
  Country: US (occurrence: US)
  Receive Date: 20250731
  Receipt Date: 20250731
  Transmission Date: 20251021
  Serious: Yes (Other)
  Sender: NOVO NORDISK
  Company Number: US-NOVOPROD-1486907

PATIENT
  Age: 67 Year
  Sex: Female
  Weight: 99.773 kg

DRUGS (3)
  1. VICTOZA [Suspect]
     Active Substance: LIRAGLUTIDE
     Indication: Obesity
  2. BYETTA [Concomitant]
     Active Substance: EXENATIDE
     Indication: Product used for unknown indication
  3. TOPIRAMATE [Concomitant]
     Active Substance: TOPIRAMATE
     Indication: Product used for unknown indication

REACTIONS (5)
  - Gastrointestinal disorder [Unknown]
  - Neuropathy peripheral [Unknown]
  - Weight increased [Unknown]
  - Adverse drug reaction [Unknown]
  - Product use in unapproved indication [Unknown]
